FAERS Safety Report 24093018 (Version 1)
Quarter: 2024Q3

REPORT INFORMATION
  Report Type: Report from Study
  Country: US (occurrence: US)
  Receive Date: 20240715
  Receipt Date: 20240715
  Transmission Date: 20241017
  Serious: Yes (Other)
  Sender: TEVA
  Company Number: US-TEVA-VS-3219263

PATIENT
  Age: 57 Year
  Sex: Female

DRUGS (5)
  1. PREDNISONE [Suspect]
     Active Substance: PREDNISONE
     Indication: Acute lymphocytic leukaemia
     Dosage: RECEIVED FROM DAYS 1-24 IN A?28 DAYS CYCLE
     Route: 065
  2. DASATINIB [Suspect]
     Active Substance: DASATINIB
     Indication: Acute lymphocytic leukaemia
     Dosage: RECEIVED IN A?28 DAYS CYCLE
     Route: 065
  3. ASCIMINIB [Suspect]
     Active Substance: ASCIMINIB
     Indication: Acute lymphocytic leukaemia
     Dosage: RECEIVED UNDER DL3 IN A 28 DAYS CYCLE
     Route: 065
  4. ASCIMINIB [Suspect]
     Active Substance: ASCIMINIB
     Indication: Acute lymphocytic leukaemia
     Dosage: RECEIVED UNDER DL1 IN A?28 DAYS CYCLE
     Route: 065
  5. ASCIMINIB [Suspect]
     Active Substance: ASCIMINIB
     Indication: Acute lymphocytic leukaemia
     Dosage: RECEIVED UNDER DL2 IN A 28 DAYS CYCLE
     Route: 065

REACTIONS (1)
  - Amylase increased [Unknown]
